FAERS Safety Report 24752386 (Version 2)
Quarter: 2024Q4

REPORT INFORMATION
  Report Type: Spontaneous
  Country: CA (occurrence: CA)
  Receive Date: 20241219
  Receipt Date: 20241231
  Transmission Date: 20250115
  Serious: Yes (Other)
  Sender: CELLTRION
  Company Number: CA-PFIZER INC-202400287691

PATIENT

DRUGS (5)
  1. INFLECTRA [Suspect]
     Active Substance: INFLIXIMAB-DYYB
     Indication: Colitis ulcerative
     Dosage: 5 MG/KG (475 MG) WEEK 0, 2, EVERY 8 WEEKS (WEEK 0)
     Route: 042
     Dates: start: 20241024
  2. INFLECTRA [Suspect]
     Active Substance: INFLIXIMAB-DYYB
     Dosage: 5 MG/KG WEEK 0, 2, EVERY 8 WEEKS
     Route: 042
     Dates: start: 20241106
  3. INFLECTRA [Suspect]
     Active Substance: INFLIXIMAB-DYYB
     Dosage: 5 MG/KG WEEK 0, 2, EVERY 8 WEEKS
     Route: 042
     Dates: start: 20241204
  4. PREDNISONE [Concomitant]
     Active Substance: PREDNISONE
     Dosage: 1 DF
     Dates: start: 202401
  5. PREDNISONE [Concomitant]
     Active Substance: PREDNISONE
     Dosage: 5 MG
     Dates: start: 2024

REACTIONS (7)
  - Condition aggravated [Not Recovered/Not Resolved]
  - Cough [Unknown]
  - Dizziness [Recovered/Resolved]
  - Abdominal pain [Unknown]
  - Back pain [Recovering/Resolving]
  - Headache [Recovering/Resolving]
  - Off label use [Unknown]

NARRATIVE: CASE EVENT DATE: 20241001
